FAERS Safety Report 20722551 (Version 1)
Quarter: 2022Q2

REPORT INFORMATION
  Report Type: Report from Study
  Country: US (occurrence: US)
  Receive Date: 20220418
  Receipt Date: 20220418
  Transmission Date: 20220720
  Serious: Yes (Other)
  Sender: FDA-Public Use
  Company Number: US-AMGEN-USASL2022067157

PATIENT
  Age: 62 Year
  Sex: Female

DRUGS (2)
  1. ENBREL [Suspect]
     Active Substance: ETANERCEPT
     Indication: Rheumatoid arthritis
     Dosage: 50 MILLIGRAM, QWK
     Route: 065
  2. COVID-19 VACCINE [Concomitant]

REACTIONS (3)
  - Pulmonary embolism [Recovering/Resolving]
  - Injection site pain [Unknown]
  - Illness [Unknown]

NARRATIVE: CASE EVENT DATE: 20200101
